FAERS Safety Report 10188011 (Version 1)
Quarter: 2014Q2

REPORT INFORMATION
  Report Type: Spontaneous
  Country: US (occurrence: US)
  Receive Date: 20140522
  Receipt Date: 20140522
  Transmission Date: 20141212
  Serious: No
  Sender: FDA-Public Use
  Company Number: US-SANOFI-AVENTIS-2013SA094375

PATIENT
  Age: 89 Year
  Sex: Female

DRUGS (2)
  1. SOLOSTAR [Suspect]
     Indication: TYPE 2 DIABETES MELLITUS
     Dosage: TAKEN FROM: MORE THAN 2 YEARS.
  2. LANTUS SOLOSTAR [Suspect]
     Indication: TYPE 2 DIABETES MELLITUS
     Dosage: TAKEN FROM: MORE THAN 2 YEARS.?DOSE: 16-18 UNITS.
     Route: 051

REACTIONS (3)
  - Asthenia [Unknown]
  - Agitation [Unknown]
  - Blood glucose decreased [Unknown]
